FAERS Safety Report 4333874-3 (Version None)
Quarter: 2004Q2

REPORT INFORMATION
  Report Type: 
  Country: None (occurrence: None)
  Receive Date: 20040407
  Receipt Date: 20040329
  Transmission Date: 20050107
  Serious: Yes (Life-Threatening, Hospitalization)
  Sender: FDA-Public Use
  Company Number: 200411027EU

PATIENT
  Age: 89 Year
  Sex: Female

DRUGS (6)
  1. LASIX [Suspect]
     Indication: HYPERTENSIVE CARDIOMYOPATHY
     Route: 048
     Dates: start: 20040101, end: 20040220
  2. ZESTRIL [Suspect]
     Indication: HYPERTENSIVE CARDIOMYOPATHY
     Route: 048
     Dates: start: 20040101, end: 20040318
  3. KANRENOL [Suspect]
     Indication: HYPERTENSIVE CARDIOMYOPATHY
     Route: 048
     Dates: start: 20040101, end: 20040220
  4. LANOXIN [Concomitant]
  5. AMIODAR [Concomitant]
  6. CARDIOASPIRIN [Concomitant]

REACTIONS (7)
  - ANOREXIA [None]
  - BLOOD POTASSIUM INCREASED [None]
  - BRONCHITIS ACUTE [None]
  - DEHYDRATION [None]
  - POLYMYALGIA RHEUMATICA [None]
  - RENAL FAILURE ACUTE [None]
  - THERAPEUTIC AGENT TOXICITY [None]
